FAERS Safety Report 8187924 (Version 3)
Quarter: 2014Q2

REPORT INFORMATION
  Report Type: Spontaneous
  Country: US (occurrence: US)
  Receive Date: 20111018
  Receipt Date: 20140522
  Transmission Date: 20141212
  Serious: Yes (Hospitalization, Other)
  Sender: FDA-Public Use
  Company Number: US-009507513-1110USA01999

PATIENT
  Sex: Female
  Weight: 97.51 kg

DRUGS (2)
  1. FOSAMAX [Suspect]
     Indication: OSTEOPOROSIS
     Dosage: 70 MG, UNK
     Route: 048
     Dates: start: 199803, end: 200812
  2. FOSAMAX [Suspect]
     Dosage: 10 MG, QD

REACTIONS (18)
  - Femur fracture [Unknown]
  - Open reduction of fracture [Unknown]
  - Transfusion [Unknown]
  - Uterine cancer [Unknown]
  - Post procedural infection [Unknown]
  - Blood cholesterol increased [Unknown]
  - Hypertension [Unknown]
  - Fall [Unknown]
  - Joint dislocation [Unknown]
  - Hypothyroidism [Unknown]
  - Hysterectomy [Unknown]
  - Cataract operation [Unknown]
  - Hypercalcaemia [Unknown]
  - Dyspnoea exertional [Unknown]
  - Dyspnoea [Unknown]
  - Gout [Unknown]
  - Ventricular extrasystoles [Unknown]
  - Weight increased [Unknown]
